FAERS Safety Report 18130243 (Version 1)
Quarter: 2020Q3

REPORT INFORMATION
  Report Type: Spontaneous
  Country: GB (occurrence: GB)
  Receive Date: 20200810
  Receipt Date: 20200810
  Transmission Date: 20201103
  Serious: Yes (Other)
  Sender: FDA-Public Use
  Company Number: NVSC2020GB219810

PATIENT
  Age: 28 Year
  Sex: Female

DRUGS (6)
  1. OXYCODONE [Concomitant]
     Active Substance: OXYCODONE
     Indication: PAIN
     Dosage: 60 MG, QD (MORNING, AFTERNOON AND EVENING, AN EXTRA TWO CAN BE TAKEN IN MIDDLE OF NIGHT)
     Route: 065
  2. FOLIC ACID. [Concomitant]
     Active Substance: FOLIC ACID
     Indication: PRODUCT USED FOR UNKNOWN INDICATION
     Dosage: 5 MG, QD
     Route: 065
  3. HYDROXOCOBALAMIN [Concomitant]
     Active Substance: HYDROXOCOBALAMIN
     Indication: PRODUCT USED FOR UNKNOWN INDICATION
     Dosage: 1 DF, Q3MO (1MG/1ML)
     Route: 065
  4. OMEPRAZOLE. [Concomitant]
     Active Substance: OMEPRAZOLE
     Indication: PRODUCT USED FOR UNKNOWN INDICATION
     Dosage: 20 MG, QD (MORNING)
     Route: 065
  5. MICROGYNON [Concomitant]
     Active Substance: ETHINYL ESTRADIOL\LEVONORGESTREL ACETATE
     Indication: PRODUCT USED FOR UNKNOWN INDICATION
     Dosage: 1 DF, QD (FOR 21 DAYS, SUBSEQUENT COURSES REPEATED AFTER 7?DAY TABLET FREE INTERVAL)
     Route: 065
  6. SECUKINUMAB. [Suspect]
     Active Substance: SECUKINUMAB
     Indication: PRODUCT USED FOR UNKNOWN INDICATION
     Dosage: UNK (150MG/1MLON A LOADING REGIME TO START? 2 INJECTIONS WEEKLYFOR 5 WEEKS THEN 2 A MONTH AFTER THAT
     Route: 065
     Dates: start: 20191101

REACTIONS (1)
  - Activated partial thromboplastin time prolonged [Recovered/Resolved]

NARRATIVE: CASE EVENT DATE: 20191210
